FAERS Safety Report 18087893 (Version 7)
Quarter: 2021Q3

REPORT INFORMATION
  Report Type: Report from Study
  Country: US (occurrence: US)
  Receive Date: 20200729
  Receipt Date: 20210923
  Transmission Date: 20211014
  Serious: Yes (Hospitalization, Other)
  Sender: FDA-Public Use
  Company Number: US-SHIRE-US202024366

PATIENT
  Age: 81 Year
  Sex: Female
  Weight: 92.52 kg

DRUGS (62)
  1. POTASSIUM [Concomitant]
     Active Substance: POTASSIUM
  2. ALPRAZOLAM. [Concomitant]
     Active Substance: ALPRAZOLAM
     Dosage: 20 MILLIGRAM, TID
  3. TRAMADOL. [Concomitant]
     Active Substance: TRAMADOL
  4. HUMAN NORMAL IMMUNOGLOBULIN; LIQUID [Suspect]
     Active Substance: HUMAN IMMUNOGLOBULIN G
     Indication: CONGENITAL HYPOGAMMAGLOBULINAEMIA
     Dosage: 10 GRAM, 1/WEEK
     Route: 058
     Dates: start: 20120912
  5. EPINEPHRINE. [Concomitant]
     Active Substance: EPINEPHRINE
  6. PRADAXA [Concomitant]
     Active Substance: DABIGATRAN ETEXILATE MESYLATE
  7. REMERON [Concomitant]
     Active Substance: MIRTAZAPINE
     Dosage: 1 DOSAGE FORM, QD
     Route: 048
  8. ATORVASTATIN CALCIUM. [Concomitant]
     Active Substance: ATORVASTATIN CALCIUM
     Dosage: 1 DOSAGE FORM, QD
     Route: 048
  9. LYRICA [Concomitant]
     Active Substance: PREGABALIN
  10. ATORVASTATIN [Concomitant]
     Active Substance: ATORVASTATIN
  11. VENLAFAXINE HCL [Concomitant]
     Active Substance: VENLAFAXINE HYDROCHLORIDE
     Dosage: 1 DOSAGE FORM, QD
     Route: 048
  12. XARELTO [Concomitant]
     Active Substance: RIVAROXABAN
     Dosage: 1 DOSAGE FORM, QD
     Route: 048
  13. ALBUTEROL SULFATE. [Concomitant]
     Active Substance: ALBUTEROL SULFATE
     Dosage: 3 MILLILITER, TID
     Route: 050
  14. DILTIAZEM. [Concomitant]
     Active Substance: DILTIAZEM
  15. OXYGEN. [Concomitant]
     Active Substance: OXYGEN
     Dosage: UNK, QD
  16. ESCITALOPRAM OXALATE. [Concomitant]
     Active Substance: ESCITALOPRAM OXALATE
     Dosage: 1 DOSAGE FORM, QD
     Route: 048
  17. VESICARE [Concomitant]
     Active Substance: SOLIFENACIN SUCCINATE
  18. SUCRALFATE. [Concomitant]
     Active Substance: SUCRALFATE
     Dosage: 1 DOSAGE FORM, BID
     Route: 048
  19. HUMAN NORMAL IMMUNOGLOBULIN; LIQUID [Suspect]
     Active Substance: HUMAN IMMUNOGLOBULIN G
     Dosage: 10 GRAM, 1/WEEK
     Route: 058
     Dates: start: 20140127
  20. SPIRONOLACTONE. [Concomitant]
     Active Substance: SPIRONOLACTONE
     Dosage: 1 DOSAGE FORM, QD
     Route: 048
  21. TOVIAZ [Concomitant]
     Active Substance: FESOTERODINE FUMARATE
  22. BREO ELLIPTA [Concomitant]
     Active Substance: FLUTICASONE FUROATE\VILANTEROL TRIFENATATE
     Dosage: UNK, QD
     Route: 055
  23. MESCALINE [Concomitant]
     Active Substance: MESCALINE
     Indication: PRURITUS
  24. CIPRO [Concomitant]
     Active Substance: CIPROFLOXACIN HYDROCHLORIDE
  25. FUROSEMIDE. [Concomitant]
     Active Substance: FUROSEMIDE
     Dosage: 40 MILLIGRAM
  26. OMEPRAZOLE. [Concomitant]
     Active Substance: OMEPRAZOLE
  27. NITROGLYCERIN. [Concomitant]
     Active Substance: NITROGLYCERIN
     Dosage: UNK, PRN
  28. MULTIVITAMIN [Concomitant]
     Active Substance: VITAMINS
  29. VIBERZI [Concomitant]
     Active Substance: ELUXADOLINE
     Dosage: 1 DOSAGE FORM, BID
     Route: 048
  30. HYDROCHLOROTHIAZIDE. [Concomitant]
     Active Substance: HYDROCHLOROTHIAZIDE
  31. POTASSIUM CHLORIDE. [Concomitant]
     Active Substance: POTASSIUM CHLORIDE
  32. CITALOPRAM [Concomitant]
     Active Substance: CITALOPRAM HYDROBROMIDE
     Dosage: 1 DOSAGE FORM, QD
     Route: 048
  33. CRANBERRY. [Concomitant]
     Active Substance: CRANBERRY
  34. ASPIRIN. [Concomitant]
     Active Substance: ASPIRIN
     Dosage: 1 DOSAGE FORM, QD
     Route: 048
  35. NITROFURANTOIN. [Concomitant]
     Active Substance: NITROFURANTOIN
  36. PLAVIX [Concomitant]
     Active Substance: CLOPIDOGREL BISULFATE
     Dosage: 1 DOSAGE FORM, QD
     Route: 048
  37. METOPROLOL TARTRATE. [Concomitant]
     Active Substance: METOPROLOL TARTRATE
  38. PANTOPRAZOLE [Concomitant]
     Active Substance: PANTOPRAZOLE
  39. HYDROMORPHONE HCL [Concomitant]
     Active Substance: HYDROMORPHONE HYDROCHLORIDE
     Dosage: 1 DOSAGE FORM, Q6HR
     Route: 048
  40. POTASSIUM BICARBONATE/CITRIC ACID [Concomitant]
     Dosage: 1 DOSAGE FORM, QD
     Route: 048
  41. BIOTIN [Concomitant]
     Active Substance: BIOTIN
     Dosage: 1 DOSAGE FORM, QD
     Route: 048
  42. SOTALOL HCL [Concomitant]
     Active Substance: SOTALOL
     Dosage: 1 DOSAGE FORM, BID
     Route: 048
  43. IMODIUM A?D [Concomitant]
     Active Substance: LOPERAMIDE HYDROCHLORIDE
     Dosage: 1 DOSAGE FORM, 4 TIMES A DAYS
     Route: 048
  44. DIPHENHYDRAMINE. [Concomitant]
     Active Substance: DIPHENHYDRAMINE
  45. PANTOPRAZOLE SODIUM. [Concomitant]
     Active Substance: PANTOPRAZOLE SODIUM
     Dosage: 1 DOSAGE FORM, QD
     Route: 048
  46. SIMVASTATIN. [Concomitant]
     Active Substance: SIMVASTATIN
     Dosage: 1 DOSAGE FORM, QD
     Route: 048
  47. LOSARTAN. [Concomitant]
     Active Substance: LOSARTAN
  48. OMEPRAZOLE. [Concomitant]
     Active Substance: OMEPRAZOLE
  49. METOPROLOL. [Concomitant]
     Active Substance: METOPROLOL
  50. REQUIP [Concomitant]
     Active Substance: ROPINIROLE HYDROCHLORIDE
  51. CEPHALEXIN. [Concomitant]
     Active Substance: CEPHALEXIN
     Indication: URINARY TRACT INFECTION
     Dosage: 1 DOSAGE FORM, Q6HR
     Route: 048
  52. MAGNESIUM [Concomitant]
     Active Substance: MAGNESIUM
  53. BUMETANIDE. [Concomitant]
     Active Substance: BUMETANIDE
     Dosage: 1 DOSAGE FORM, QD
     Route: 048
  54. TRIAMTERENE + HCTZ [Concomitant]
     Active Substance: HYDROCHLOROTHIAZIDE\TRIAMTERENE
     Dosage: 1 DOSAGE FORM, QD
     Route: 048
  55. HUMAN NORMAL IMMUNOGLOBULIN; LIQUID [Suspect]
     Active Substance: HUMAN IMMUNOGLOBULIN G
     Dosage: 10 GRAM, 1/WEEK
     Route: 058
     Dates: start: 20120914
  56. LOSARTAN POTASSIUM. [Concomitant]
     Active Substance: LOSARTAN POTASSIUM
  57. CITALOPRAM [Concomitant]
     Active Substance: CITALOPRAM HYDROBROMIDE
  58. D?MANNOSE [Concomitant]
  59. ARICEPT [Concomitant]
     Active Substance: DONEPEZIL HYDROCHLORIDE
  60. CIPROFLOXACIN HCL [Concomitant]
     Active Substance: CIPROFLOXACIN HYDROCHLORIDE
     Dosage: 1 DOSAGE FORM, BID
     Route: 048
  61. IPRATROPIUM BROMIDE. [Concomitant]
     Active Substance: IPRATROPIUM BROMIDE
     Dosage: UNK, BID
     Route: 045
  62. CARAFATE [Concomitant]
     Active Substance: SUCRALFATE

REACTIONS (8)
  - Atrial fibrillation [Unknown]
  - Renal disorder [Unknown]
  - Urinary tract infection [Not Recovered/Not Resolved]
  - Infusion related reaction [Unknown]
  - Pruritus [Unknown]
  - Product dose omission issue [Unknown]
  - Fall [Unknown]
  - Product leakage [Unknown]

NARRATIVE: CASE EVENT DATE: 20200810
